FAERS Safety Report 23675003 (Version 2)
Quarter: 2024Q2

REPORT INFORMATION
  Report Type: Other
  Country: JP (occurrence: JP)
  Receive Date: 20240326
  Receipt Date: 20240523
  Transmission Date: 20240716
  Serious: Yes (Death)
  Sender: FDA-Public Use
  Company Number: JP-CHUGAI-2024009576AA

PATIENT
  Age: 80 Year
  Sex: Male
  Weight: 51.1 kg

DRUGS (2)
  1. AVASTIN [Suspect]
     Active Substance: BEVACIZUMAB
     Indication: Hepatocellular carcinoma
     Dosage: UNK
     Route: 065
  2. TECENTRIQ [Suspect]
     Active Substance: ATEZOLIZUMAB
     Indication: Hepatocellular carcinoma
     Dosage: UNK
     Route: 065
     Dates: start: 20210408, end: 20221117

REACTIONS (3)
  - Cardio-respiratory arrest [Fatal]
  - Hypertension [Recovering/Resolving]
  - Protein urine [Recovering/Resolving]

NARRATIVE: CASE EVENT DATE: 20211023
